FAERS Safety Report 16941288 (Version 1)
Quarter: 2019Q4

REPORT INFORMATION
  Report Type: Spontaneous
  Country: US (occurrence: US)
  Receive Date: 20190829
  Receipt Date: 20190829
  Transmission Date: 20200122
  Serious: No
  Sender: FDA-Public Use
  Company Number: None

PATIENT
  Age: 37 Year
  Sex: Female
  Weight: 155.13 kg

DRUGS (8)
  1. REBIF [Concomitant]
     Active Substance: INTERFERON BETA-1A
  2. LEVETIRACETAM. [Concomitant]
     Active Substance: LEVETIRACETAM
  3. TIZANIDINE HCL [Concomitant]
     Active Substance: TIZANIDINE HYDROCHLORIDE
  4. OCREVUS [Suspect]
     Active Substance: OCRELIZUMAB
     Dates: start: 20190520, end: 20190624
  5. OCRELIZUMAB. [Concomitant]
     Active Substance: OCRELIZUMAB
  6. CITALOPRAM HYDROBROMIDE. [Concomitant]
     Active Substance: CITALOPRAM HYDROBROMIDE
  7. CHOLECALCIFEROL [Concomitant]
     Active Substance: CHOLECALCIFEROL
  8. MEDROL [Concomitant]
     Active Substance: METHYLPREDNISOLONE

REACTIONS (11)
  - Paraesthesia [None]
  - Seizure [None]
  - Hypoaesthesia [None]
  - Asthenia [None]
  - Vasogenic cerebral oedema [None]
  - Myalgia [None]
  - Muscle spasms [None]
  - Irritability [None]
  - Propionibacterium test positive [None]
  - Headache [None]
  - Intracranial mass [None]

NARRATIVE: CASE EVENT DATE: 20190520
